FAERS Safety Report 19114845 (Version 1)
Quarter: 2021Q2

REPORT INFORMATION
  Report Type: Other
  Country: GB (occurrence: GB)
  Receive Date: 20210409
  Receipt Date: 20210409
  Transmission Date: 20210717
  Serious: Yes (Other)
  Sender: FDA-Public Use
  Company Number: GB-MACLEODS PHARMA UK LTD-MAC2021030722

PATIENT

DRUGS (2)
  1. DESMOPRESSIN ACETATE. [Concomitant]
     Active Substance: DESMOPRESSIN ACETATE
     Indication: ENURESIS
     Dosage: UNK
     Route: 065
     Dates: start: 2017
  2. TOLTERODINE [Suspect]
     Active Substance: TOLTERODINE
     Indication: ENURESIS
     Dosage: 1 MILLIGRAM, TOLTERODINE L?TARTARATE
     Route: 048
     Dates: start: 2018, end: 20200323

REACTIONS (5)
  - Crying [Recovered/Resolved]
  - Disturbance in social behaviour [Recovered/Resolved]
  - Emotional disorder [Recovered/Resolved]
  - Depressed mood [Recovered/Resolved]
  - Personality change [Recovered/Resolved]

NARRATIVE: CASE EVENT DATE: 2018
